FAERS Safety Report 4837722-4 (Version None)
Quarter: 2005Q4

REPORT INFORMATION
  Report Type: 
  Country: None (occurrence: None)
  Receive Date: 20051123
  Receipt Date: 20051123
  Transmission Date: 20060501
  Serious: Yes (Hospitalization)
  Sender: FDA-Public Use
  Company Number: None

PATIENT
  Sex: Female

DRUGS (2)
  1. LANTUS [Suspect]
     Indication: DIABETES MELLITUS INSULIN-DEPENDENT
     Dosage: 50 UNITS SQ QHS
     Route: 058
  2. HYDROCHLOROTHIAZIDE [Concomitant]

REACTIONS (9)
  - BLOOD GLUCOSE INCREASED [None]
  - BLOOD KETONE BODY PRESENT [None]
  - CONFUSIONAL STATE [None]
  - FATIGUE [None]
  - POLYDIPSIA [None]
  - POLYURIA [None]
  - URINE KETONE BODY PRESENT [None]
  - VISION BLURRED [None]
  - WEIGHT DECREASED [None]
